FAERS Safety Report 25959670 (Version 2)
Quarter: 2025Q4

REPORT INFORMATION
  Report Type: Report from Study
  Country: EU (occurrence: EU)
  Receive Date: 20251026
  Receipt Date: 20251229
  Transmission Date: 20260118
  Serious: Yes (Other)
  Sender: SANOFI AVENTIS
  Company Number: EU-SA-2025SA314486

PATIENT

DRUGS (1)
  1. BELUMOSUDIL MESYLATE [Suspect]
     Active Substance: BELUMOSUDIL MESYLATE
     Dosage: UNK

REACTIONS (4)
  - Polyneuropathy [Unknown]
  - Graft versus host disease in eye [Unknown]
  - Condition aggravated [Unknown]
  - Drug ineffective [Unknown]
